FAERS Safety Report 7660112-6 (Version None)
Quarter: 2011Q3

REPORT INFORMATION
  Report Type: 
  Country: None (occurrence: None)
  Receive Date: 20110805
  Receipt Date: 20110725
  Transmission Date: 20111222
  Serious: Yes (Hospitalization, Other)
  Sender: FDA-Public Use
  Company Number: PHHY2010US59123

PATIENT
  Sex: Female

DRUGS (1)
  1. EXJADE [Suspect]
     Indication: IRON METABOLISM DISORDER
     Dosage: 500 MG, BID
     Route: 048
     Dates: start: 20090512

REACTIONS (4)
  - ANAEMIA [None]
  - PULMONARY MASS [None]
  - SEBORRHOEIC KERATOSIS [None]
  - PRECANCEROUS CELLS PRESENT [None]
